FAERS Safety Report 15272407 (Version 1)
Quarter: 2018Q3

REPORT INFORMATION
  Report Type: Spontaneous
  Country: US (occurrence: US)
  Receive Date: 20180813
  Receipt Date: 20180813
  Transmission Date: 20181010
  Serious: No
  Sender: FDA-Public Use
  Company Number: US-DEPOMED, INC.-US-2017DEP002078

PATIENT

DRUGS (1)
  1. CAMBIA [Suspect]
     Active Substance: DICLOFENAC POTASSIUM
     Indication: PRODUCT USED FOR UNKNOWN INDICATION
     Dosage: 50 MG, MIX 1 PACKET WITH 1?2 OUNCES OF WATER, DO NOT USE MORE THAN TWICE A WEEK
     Route: 048
     Dates: start: 20170921

REACTIONS (1)
  - Nausea [Not Recovered/Not Resolved]
